FAERS Safety Report 25876789 (Version 1)
Quarter: 2025Q4

REPORT INFORMATION
  Report Type: Spontaneous
  Country: US (occurrence: US)
  Receive Date: 20251003
  Receipt Date: 20251003
  Transmission Date: 20260118
  Serious: Yes (Other)
  Sender: SANOFI AVENTIS
  Company Number: US-SA-2025SA292754

PATIENT
  Age: 49 Year
  Sex: Female

DRUGS (18)
  1. DUPIXENT [Suspect]
     Active Substance: DUPILUMAB
     Indication: Asthma
     Dosage: 300 MG
     Route: 058
     Dates: start: 20240412
  2. CROMOLYN [Concomitant]
     Active Substance: CROMOLYN
  3. LORATADINE [Concomitant]
     Active Substance: LORATADINE
  4. MELATONIN [Concomitant]
     Active Substance: MELATONIN
  5. FLUCONAZOLE [Concomitant]
     Active Substance: FLUCONAZOLE
  6. VITAMIN D3 [Concomitant]
     Active Substance: CHOLECALCIFEROL
  7. ADVAIR HFA [Concomitant]
     Active Substance: FLUTICASONE PROPIONATE\SALMETEROL XINAFOATE
  8. CALCIUM [Concomitant]
     Active Substance: CALCIUM
  9. SERTRALINE HYDROCHLORIDE [Concomitant]
     Active Substance: SERTRALINE HYDROCHLORIDE
  10. PEPCID [Concomitant]
     Active Substance: FAMOTIDINE
  11. MONTELUKAST [Concomitant]
     Active Substance: MONTELUKAST
  12. ZINC [Concomitant]
     Active Substance: ZINC
  13. GABAPENTIN [Concomitant]
     Active Substance: GABAPENTIN
  14. IRON [Concomitant]
     Active Substance: IRON
  15. METAMUCIL [Concomitant]
     Active Substance: PLANTAGO SEED
  16. WELLBUTRIN [Concomitant]
     Active Substance: BUPROPION HYDROCHLORIDE
  17. ALEVE [Concomitant]
     Active Substance: NAPROXEN SODIUM
  18. PROTOPIC [Concomitant]
     Active Substance: TACROLIMUS

REACTIONS (1)
  - Diabetes mellitus [Unknown]

NARRATIVE: CASE EVENT DATE: 20250929
